FAERS Safety Report 21521185 (Version 6)
Quarter: 2022Q4

REPORT INFORMATION
  Report Type: Report from Study
  Country: US (occurrence: US)
  Receive Date: 20221028
  Receipt Date: 20221222
  Transmission Date: 20230113
  Serious: No
  Sender: FDA-Public Use
  Company Number: US-NOVARTISTESTPH-NVSC2022US242302

PATIENT
  Sex: Male

DRUGS (1)
  1. COSENTYX [Suspect]
     Active Substance: SECUKINUMAB
     Indication: Psoriasis
     Dosage: 300 MG, QMO
     Route: 058

REACTIONS (7)
  - Malaise [Unknown]
  - Discomfort [Unknown]
  - Abulia [Unknown]
  - Injection site rash [Recovered/Resolved]
  - Stress [Unknown]
  - Psoriasis [Unknown]
  - Therapeutic product effect incomplete [Recovering/Resolving]
